FAERS Safety Report 5196222-5 (Version None)
Quarter: 2006Q4

REPORT INFORMATION
  Report Type: 
  Country: None (occurrence: None)
  Receive Date: 20061222
  Receipt Date: 20060628
  Transmission Date: 20070319
  Serious: Yes (Death, Hospitalization)
  Sender: FDA-Public Use
  Company Number: 2006BH011501

PATIENT
  Age: 87 Year
  Sex: Male
  Weight: 76.4 kg

DRUGS (13)
  1. EXTRANEAL [Suspect]
     Indication: PERITONEAL DIALYSIS
     Dosage: 2 L;EVERY DAY; IP
     Route: 033
     Dates: start: 20051101, end: 20051201
  2. KETOVITE [Concomitant]
  3. FOLIC ACID [Concomitant]
  4. CALCIDOL [Concomitant]
  5. PAMIDRONATE DISODIUM [Concomitant]
  6. LANSOPRAZOLE [Concomitant]
  7. AMIODARONE HCL [Concomitant]
  8. SPIRONOLACTONE [Concomitant]
  9. ASPIRIN [Concomitant]
  10. PRAMIPEXOLE DIHYDROCHLORIDE [Concomitant]
  11. LACTULOSE [Concomitant]
  12. SENNA [Concomitant]
  13. CALCICHEW [Concomitant]

REACTIONS (11)
  - BLOOD ALBUMIN DECREASED [None]
  - BLOOD ALKALINE PHOSPHATASE INCREASED [None]
  - C-REACTIVE PROTEIN INCREASED [None]
  - HAEMATOCRIT DECREASED [None]
  - HAEMODIALYSIS [None]
  - HAEMOGLOBIN DECREASED [None]
  - LYMPHOCYTE COUNT DECREASED [None]
  - PERITONITIS [None]
  - RED BLOOD CELL COUNT DECREASED [None]
  - RESPIRATORY FAILURE [None]
  - TRANSIENT ISCHAEMIC ATTACK [None]
